FAERS Safety Report 25458909 (Version 4)
Quarter: 2025Q4

REPORT INFORMATION
  Report Type: Report from Study
  Country: CA (occurrence: CA)
  Receive Date: 20250620
  Receipt Date: 20251226
  Transmission Date: 20260119
  Serious: Yes (Disabling)
  Sender: CELLTRION
  Company Number: CA-CELLTRION INC.-2025CA019286

PATIENT

DRUGS (6)
  1. ADALIMUMAB-AATY [Suspect]
     Active Substance: ADALIMUMAB-AATY
     Indication: Hidradenitis
     Dosage: LOADING - 80 MG
     Route: 058
     Dates: start: 20250318
  2. ADALIMUMAB-AATY [Suspect]
     Active Substance: ADALIMUMAB-AATY
     Dosage: MAINTENANCE - 40 MG EVERY 2 WEEKS
     Route: 058
     Dates: start: 20250318
  3. ADALIMUMAB-AATY [Suspect]
     Active Substance: ADALIMUMAB-AATY
     Dosage: MAINTENANCE - 40 MG EVERY 2 WEEKS STARTS FROM WEEK 1
     Route: 058
     Dates: start: 20250318
  4. TRIMETHOPRIM [Concomitant]
     Active Substance: TRIMETHOPRIM
     Dosage: 2 TABLETS
     Route: 048
  5. TRIMETHOPRIM [Concomitant]
     Active Substance: TRIMETHOPRIM
     Dosage: 20 ML
     Route: 048
  6. ZINC [Concomitant]
     Active Substance: ZINC
     Dosage: UNK

REACTIONS (6)
  - Gait inability [Unknown]
  - Pain in extremity [Unknown]
  - Muscle spasms [Unknown]
  - Intentional dose omission [Unknown]
  - Incorrect dose administered [Unknown]
  - Off label use [Unknown]
